FAERS Safety Report 11872322 (Version 1)
Quarter: 2015Q4

REPORT INFORMATION
  Report Type: Other
  Country: TR (occurrence: TR)
  Receive Date: 20151228
  Receipt Date: 20151228
  Transmission Date: 20160305
  Serious: Yes (Hospitalization, Other)
  Sender: FDA-Public Use
  Company Number: TR-PURDUE PHARMA-CAN-2015-0006347

PATIENT
  Age: 13 Year
  Sex: Male

DRUGS (12)
  1. NON-PMN METHYLPHENIDATE HCL [Suspect]
     Active Substance: METHYLPHENIDATE HYDROCHLORIDE
     Dosage: 10 MG DAILY
     Route: 065
  2. RISPERIDONE. [Suspect]
     Active Substance: RISPERIDONE
     Indication: ATTENTION DEFICIT/HYPERACTIVITY DISORDER
     Dosage: 0.5 MG, DAILY
     Route: 065
     Dates: start: 2008
  3. NON-PMN METHYLPHENIDATE HCL [Suspect]
     Active Substance: METHYLPHENIDATE HYDROCHLORIDE
     Dosage: 36 MG, UNK
     Route: 065
  4. ARIPIPRAZOLE. [Suspect]
     Active Substance: ARIPIPRAZOLE
     Indication: ATTENTION DEFICIT/HYPERACTIVITY DISORDER
     Dosage: 5 MG, DAILY
     Route: 065
  5. RISPERIDONE. [Suspect]
     Active Substance: RISPERIDONE
     Indication: CONDUCT DISORDER
     Dosage: 2.5 MG, DAILY
     Route: 065
  6. QUETIAPINE [Suspect]
     Active Substance: QUETIAPINE
     Indication: CONDUCT DISORDER
     Dosage: 200 MG, DAILY
     Route: 065
  7. NON-PMN METHYLPHENIDATE HCL [Suspect]
     Active Substance: METHYLPHENIDATE HYDROCHLORIDE
     Indication: CONDUCT DISORDER
     Dosage: 54 MG, DAILY
     Route: 065
  8. ARIPIPRAZOLE. [Suspect]
     Active Substance: ARIPIPRAZOLE
     Indication: CONDUCT DISORDER
     Dosage: 20 MG, DAILY
     Route: 065
  9. CHLORPROMAZINE. [Suspect]
     Active Substance: CHLORPROMAZINE
     Indication: PRIAPISM
     Dosage: 50 MG, UNK
     Route: 065
  10. QUETIAPINE [Suspect]
     Active Substance: QUETIAPINE
     Indication: ATTENTION DEFICIT/HYPERACTIVITY DISORDER
     Dosage: 25 MG, DAILY
     Route: 065
  11. NON-PMN METHYLPHENIDATE HCL [Suspect]
     Active Substance: METHYLPHENIDATE HYDROCHLORIDE
     Indication: ATTENTION DEFICIT/HYPERACTIVITY DISORDER
     Dosage: 36 MG, DAILY
     Route: 065
  12. NON-PMN METHYLPHENIDATE HCL [Suspect]
     Active Substance: METHYLPHENIDATE HYDROCHLORIDE
     Dosage: 54 MG, DAILY
     Route: 065

REACTIONS (1)
  - Priapism [Recovered/Resolved]
